FAERS Safety Report 7661410 (Version 2)
Quarter: 2013Q2

REPORT INFORMATION
  Report Type: Spontaneous
  Country: US (occurrence: US)
  Receive Date: 20101109
  Receipt Date: 20130605
  Transmission Date: 20140414
  Serious: Yes (Hospitalization)
  Sender: FDA-Public Use
  Company Number: US-BAYER-201031054NA

PATIENT
  Age: 23 Year
  Sex: Female
  Weight: 90.7 kg

DRUGS (5)
  1. YAZ [Suspect]
     Indication: PREMENSTRUAL DYSPHORIC DISORDER
     Dosage: UNK
     Route: 048
     Dates: start: 200801, end: 200910
  2. YAZ [Suspect]
     Indication: PREMENSTRUAL SYNDROME
  3. ANTIBIOTICS [Concomitant]
  4. VITAMIN C [Concomitant]
  5. NSAID^S [Concomitant]

REACTIONS (4)
  - Cholecystitis acute [None]
  - Chest pain [None]
  - Injury [None]
  - Pain [None]
